FAERS Safety Report 6763474-7 (Version None)
Quarter: 2010Q2

REPORT INFORMATION
  Report Type: 
  Country: None (occurrence: None)
  Receive Date: 20100608
  Receipt Date: 20100528
  Transmission Date: 20101027
  Serious: Yes (Other)
  Sender: FDA-Public Use
  Company Number: 2008US002474

PATIENT
  Age: 5 Year
  Sex: Male

DRUGS (3)
  1. FK463 (MICAFUNGIN) INJECTION [Suspect]
     Indication: CANDIDIASIS
     Dosage: 74.7 MG, UID/QD, IV NOS
     Route: 042
     Dates: start: 20080912, end: 20080917
  2. EMPAPED (PARACETAMOL) [Concomitant]
  3. PANADO (PARACETAMOL) [Concomitant]

REACTIONS (3)
  - CHILLS [None]
  - FEBRILE CONVULSION [None]
  - HEADACHE [None]
